FAERS Safety Report 23133531 (Version 1)
Quarter: 2023Q4

REPORT INFORMATION
  Report Type: Spontaneous
  Country: US (occurrence: US)
  Receive Date: 20231101
  Receipt Date: 20231101
  Transmission Date: 20240110
  Serious: Yes (Disabling)
  Sender: FDA-Public Use
  Company Number: US-AMGEN-USASP2023191325

PATIENT
  Age: 74 Year
  Sex: Female

DRUGS (2)
  1. REPATHA [Suspect]
     Active Substance: EVOLOCUMAB
     Indication: Blood cholesterol increased
     Dosage: 140 MILLIGRAM, Q2WK (140 MG/ML)
     Route: 065
     Dates: start: 20230420
  2. VALSARTAN [Concomitant]
     Active Substance: VALSARTAN
     Indication: Product used for unknown indication
     Dosage: UNK UNK, QD
     Route: 065
     Dates: start: 202304

REACTIONS (9)
  - Fatigue [Unknown]
  - Sneezing [Unknown]
  - Injection site haemorrhage [Unknown]
  - Intercepted product administration error [Unknown]
  - Rhinorrhoea [Unknown]
  - Injection site bruising [Unknown]
  - Injection site pain [Unknown]
  - Hypertension [Unknown]
  - Incorrect disposal of product [Unknown]

NARRATIVE: CASE EVENT DATE: 20230101
